FAERS Safety Report 22283819 (Version 1)
Quarter: 2023Q2

REPORT INFORMATION
  Report Type: Spontaneous
  Country: US (occurrence: None)
  Receive Date: 20230503
  Receipt Date: 20230503
  Transmission Date: 20230722
  Serious: Yes (Other)
  Sender: FDA-Public Use
  Company Number: None

PATIENT
  Age: 77 Year
  Sex: Female
  Weight: 50.71 kg

DRUGS (10)
  1. CAPECITABINE [Suspect]
     Active Substance: CAPECITABINE
     Indication: Breast cancer female
     Dosage: 1000MG TWICE DAILY ORAL?
     Route: 048
     Dates: start: 20230329
  2. ATORVASTATIN [Concomitant]
     Active Substance: ATORVASTATIN
  3. BENADRYL [Concomitant]
     Active Substance: DIPHENHYDRAMINE HYDROCHLORIDE
  4. ELIQUIS [Concomitant]
     Active Substance: APIXABAN
  5. KLONOPIN [Concomitant]
     Active Substance: CLONAZEPAM
  6. LOPERAMIDE [Concomitant]
     Active Substance: LOPERAMIDE
  7. METOPROLOL [Concomitant]
     Active Substance: METOPROLOL
  8. NERLYNX [Concomitant]
     Active Substance: NERATINIB
  9. REMERON [Concomitant]
     Active Substance: MIRTAZAPINE
  10. SYNTHROID [Concomitant]
     Active Substance: LEVOTHYROXINE SODIUM

REACTIONS (2)
  - Therapy interrupted [None]
  - Skin disorder [None]
